FAERS Safety Report 7911339-7 (Version None)
Quarter: 2011Q4

REPORT INFORMATION
  Report Type: 
  Country: None (occurrence: None)
  Receive Date: 20111114
  Receipt Date: 20111102
  Transmission Date: 20120403
  Serious: Yes (Death, Hospitalization)
  Sender: FDA-Public Use
  Company Number: US-EISAI INC-E7273-00261-CLI-US

PATIENT
  Age: 78 Year
  Sex: Male
  Weight: 99 kg

DRUGS (16)
  1. AMITRIPTYLINE HCL [Concomitant]
     Route: 048
  2. AMOXICILLIN [Concomitant]
     Route: 048
  3. FENOFIBRATE [Concomitant]
     Route: 048
  4. PRILOSEC [Concomitant]
     Route: 048
  5. FUROSEMIDE [Concomitant]
     Route: 048
  6. VALACICLOVIR [Concomitant]
     Route: 048
  7. FLUCONAZOLE [Concomitant]
     Route: 048
  8. LIPITOR [Concomitant]
     Route: 048
  9. DECITABINE [Suspect]
     Indication: ACUTE MYELOID LEUKAEMIA
     Route: 041
     Dates: start: 20110817, end: 20111014
  10. ATENOLOL [Concomitant]
     Route: 048
  11. LEVOTHYROXINE SODIUM [Concomitant]
     Route: 048
  12. TARGRETIN [Suspect]
     Indication: ACUTE MYELOID LEUKAEMIA
     Route: 048
     Dates: start: 20110815, end: 20111014
  13. CELEBREX [Concomitant]
     Route: 048
  14. CIPRO [Concomitant]
     Route: 048
  15. HYDROMORPHONE HCL [Concomitant]
     Route: 048
  16. HYDROCHLOROTHIAZIDE [Concomitant]
     Route: 048

REACTIONS (3)
  - LUNG INFECTION [None]
  - FEBRILE NEUTROPENIA [None]
  - SEPSIS [None]
